FAERS Safety Report 13472749 (Version 2)
Quarter: 2018Q2

REPORT INFORMATION
  Report Type: Spontaneous
  Country: US (occurrence: US)
  Receive Date: 20170424
  Receipt Date: 20180423
  Transmission Date: 20180711
  Serious: Yes (Other)
  Sender: FDA-Public Use
  Company Number: US-TEVA-699051USA

PATIENT
  Sex: Female
  Weight: 54.48 kg

DRUGS (7)
  1. PROGESTERONE MICRONIZED [Concomitant]
     Route: 048
  2. ASPIRIN. [Concomitant]
     Active Substance: ASPIRIN
     Dosage: 81 MILLIGRAM DAILY;
     Dates: end: 201609
  3. ASPIRIN. [Concomitant]
     Active Substance: ASPIRIN
     Dosage: 325 MILLIGRAM DAILY;
     Route: 048
     Dates: start: 201609
  4. ANAGRELIDE. [Suspect]
     Active Substance: ANAGRELIDE HYDROCHLORIDE
     Indication: ESSENTIAL THROMBOCYTHAEMIA
     Dosage: 2-3 TIMES PER DAY
     Dates: start: 2004, end: 201609
  5. FOLIC ACID. [Concomitant]
     Active Substance: FOLIC ACID
     Route: 048
  6. HYDROXYUREA. [Concomitant]
     Active Substance: HYDROXYUREA
     Dosage: 500 MILLIGRAM DAILY;
  7. CALCIUM CARBONATE W/VITAMIN D [Concomitant]
     Dosage: 5000 (UNITS NOT PROVIDED)
     Route: 048

REACTIONS (6)
  - Insomnia [Recovering/Resolving]
  - Weight decreased [Not Recovered/Not Resolved]
  - Ventricular tachycardia [Recovered/Resolved]
  - Palpitations [Recovering/Resolving]
  - Supraventricular tachycardia [Not Recovered/Not Resolved]
  - Polycythaemia [Unknown]

NARRATIVE: CASE EVENT DATE: 2004
